FAERS Safety Report 6028044-7 (Version None)
Quarter: 2008Q4

REPORT INFORMATION
  Report Type: 
  Country: None (occurrence: None)
  Receive Date: 20081231
  Receipt Date: 20081219
  Transmission Date: 20090506
  Serious: Yes (Hospitalization)
  Sender: FDA-Public Use
  Company Number: GXKR2008NL12162

PATIENT
  Age: 46 Year
  Sex: Male

DRUGS (6)
  1. CIPROFLOXACIN [Suspect]
     Indication: UROSEPSIS
     Dosage: 400 MG, BID, INTRAVENOUS
     Route: 042
  2. CLOZAPINE [Suspect]
     Indication: SCHIZOPHRENIA, PARANOID TYPE
     Dosage: 900 MG
  3. CITALOPRAM HYDROBROMIDE [Concomitant]
  4. LORAZEPAM [Concomitant]
  5. VALPROIC ACID (VALPROIC ACID) [Concomitant]
  6. AMOXICILLIN [Concomitant]

REACTIONS (4)
  - DRUG INTERACTION [None]
  - DRUG LEVEL INCREASED [None]
  - RHABDOMYOLYSIS [None]
  - WEIGHT DECREASED [None]
